FAERS Safety Report 9000551 (Version 1)
Quarter: 2013Q1

REPORT INFORMATION
  Report Type: Spontaneous
  Country: US (occurrence: None)
  Receive Date: 20130103
  Receipt Date: 20130103
  Transmission Date: 20140127
  Serious: Yes (Other)
  Sender: FDA-Public Use
  Company Number: None

PATIENT
  Sex: Male
  Weight: 81.8 kg

DRUGS (1)
  1. ROPINIROLE [Suspect]
     Indication: BIPOLAR DISORDER
     Route: 048
     Dates: start: 2009

REACTIONS (2)
  - Nausea [None]
  - Vomiting [None]
